FAERS Safety Report 16050651 (Version 1)
Quarter: 2019Q1

REPORT INFORMATION
  Report Type: Spontaneous
  Country: ES (occurrence: ES)
  Receive Date: 20190308
  Receipt Date: 20190308
  Transmission Date: 20190418
  Serious: Yes (Other)
  Sender: FDA-Public Use
  Company Number: ES-SUN PHARMACEUTICAL INDUSTRIES LTD-2019RR-201224

PATIENT
  Age: 74 Year
  Sex: Female

DRUGS (3)
  1. SIMVASTATINA 10 MG 28 COMPRIMIDOS [Concomitant]
     Indication: PRODUCT USED FOR UNKNOWN INDICATION
     Dosage: 10 MILLIGRAM, DAILY
     Route: 048
     Dates: start: 20081215
  2. PANTOPRAZOL [Suspect]
     Active Substance: PANTOPRAZOLE SODIUM
     Indication: PRODUCT USED FOR UNKNOWN INDICATION
     Dosage: 20 MILLIGRAM, DAILY
     Route: 048
     Dates: start: 20180516, end: 20190206
  3. DENOSUMAB 60 MG INYECTABLE 1 ML 1 JERINGA PRECARGADA [Concomitant]
     Indication: CRUSH INJURY
     Dosage: 1 DOSAGE FORM
     Route: 058
     Dates: start: 20170105

REACTIONS (2)
  - Muscle fatigue [Recovered/Resolved]
  - Gait disturbance [Recovered/Resolved]

NARRATIVE: CASE EVENT DATE: 20181201
